FAERS Safety Report 21833404 (Version 1)
Quarter: 2023Q1

REPORT INFORMATION
  Report Type: Spontaneous
  Country: US (occurrence: US)
  Receive Date: 20230107
  Receipt Date: 20230107
  Transmission Date: 20230417
  Serious: No
  Sender: FDA-Public Use
  Company Number: US-drreddys-SPO/USA/22/0158996

PATIENT
  Age: 71 Year
  Sex: Male

DRUGS (9)
  1. LENALIDOMIDE [Suspect]
     Active Substance: LENALIDOMIDE
     Indication: Myelodysplastic syndrome
     Dosage: TAKE 1 CAPSULE BY MOUTH DAILY ON DAYS 1-21 OUT OF 28 DAYS
     Route: 048
     Dates: start: 20221110
  2. ALLOPURINOL [Concomitant]
     Active Substance: ALLOPURINOL
     Indication: Product used for unknown indication
  3. ADVAIR DISKU AEP 100-50MC [Concomitant]
     Indication: Product used for unknown indication
  4. AMLODIPINE B TAB 10MG [Concomitant]
     Indication: Product used for unknown indication
  5. EZETIMIBE [Concomitant]
     Active Substance: EZETIMIBE
     Indication: Product used for unknown indication
  6. HYDROCHLOROT TAB 25MG [Concomitant]
     Indication: Product used for unknown indication
  7. LOSARTAN POT TAB 100MG [Concomitant]
     Indication: Product used for unknown indication
  8. MULTIVITAMIN TAB [Concomitant]
     Indication: Product used for unknown indication
  9. VITAMIN B12 TBC 1000MCG [Concomitant]
     Indication: Product used for unknown indication

REACTIONS (1)
  - Muscle spasms [Not Recovered/Not Resolved]
